FAERS Safety Report 19208458 (Version 2)
Quarter: 2021Q2

REPORT INFORMATION
  Report Type: Spontaneous
  Country: AR (occurrence: AR)
  Receive Date: 20210503
  Receipt Date: 20210519
  Transmission Date: 20210717
  Serious: No
  Sender: FDA-Public Use
  Company Number: NVSC2021AR098520

PATIENT
  Age: 74 Year
  Sex: Female

DRUGS (3)
  1. AZOPT [Suspect]
     Active Substance: BRINZOLAMIDE
     Indication: GLAUCOMA
     Dosage: 2 UNK, TID (START DATE: 2 YEARS AGO APPROXIMATELY)
     Route: 065
     Dates: start: 202010
  2. INSULIN [Concomitant]
     Active Substance: INSULIN NOS
     Indication: DIABETES MELLITUS
     Dosage: 5 YEARS AGO
     Route: 065
  3. LOPLAC [Concomitant]
     Indication: HYPERTENSION
     Dosage: MORE THAN 10 YEARS AGO
     Route: 065

REACTIONS (1)
  - Drug effect less than expected [Unknown]
